FAERS Safety Report 21867878 (Version 1)
Quarter: 2023Q1

REPORT INFORMATION
  Report Type: Spontaneous
  Country: US (occurrence: US)
  Receive Date: 20230116
  Receipt Date: 20230116
  Transmission Date: 20230418
  Serious: No
  Sender: FDA-Public Use
  Company Number: US-INSUD PHARMA-2301US00071

PATIENT

DRUGS (2)
  1. OMEPRAZOLE [Suspect]
     Active Substance: OMEPRAZOLE
     Indication: Product used for unknown indication
     Dosage: 20 MG, ONE IN THE MORNING AND ONE IN THE AFTERNNON/EVENING
     Route: 048
     Dates: end: 202301
  2. OMEPRAZOLE [Suspect]
     Active Substance: OMEPRAZOLE
     Dosage: 20 MG X 2 IN EVENING
     Dates: start: 202301

REACTIONS (5)
  - Drug ineffective [Recovering/Resolving]
  - Gastrooesophageal reflux disease [Recovering/Resolving]
  - Therapeutic product effect decreased [Recovering/Resolving]
  - Product substitution issue [Unknown]
  - Inappropriate schedule of product administration [Unknown]
